FAERS Safety Report 14252869 (Version 2)
Quarter: 2017Q4

REPORT INFORMATION
  Report Type: Spontaneous
  Country: JP (occurrence: JP)
  Receive Date: 20171206
  Receipt Date: 20171221
  Transmission Date: 20180321
  Serious: Yes (Other)
  Sender: FDA-Public Use
  Company Number: JP-BEH-2017085590

PATIENT
  Age: 92 Year
  Sex: Female
  Weight: 36 kg

DRUGS (1)
  1. KCENTRA [Suspect]
     Active Substance: COAGULATION FACTOR IX HUMAN\COAGULATION FACTOR VII HUMAN\COAGULATION FACTOR X HUMAN\PROTEIN C\PROTEIN S HUMAN\PROTHROMBIN
     Indication: SUBDURAL HAEMATOMA
     Dosage: 1850 IU, UNK
     Route: 042
     Dates: start: 20171109, end: 20171109

REACTIONS (7)
  - Aphasia [Recovered/Resolved]
  - Thrombosis [Recovered/Resolved]
  - Altered state of consciousness [Recovered/Resolved]
  - Cerebral artery embolism [Recovered/Resolved]
  - Cerebral artery occlusion [Recovered/Resolved]
  - Quadriplegia [Recovered/Resolved]
  - Cerebral infarction [Recovered/Resolved]

NARRATIVE: CASE EVENT DATE: 20171112
